FAERS Safety Report 9169026 (Version 2)
Quarter: 2013Q2

REPORT INFORMATION
  Report Type: Spontaneous
  Country: IT (occurrence: IT)
  Receive Date: 20130318
  Receipt Date: 20130422
  Transmission Date: 20140414
  Serious: Yes (Hospitalization)
  Sender: FDA-Public Use
  Company Number: IT-BRISTOL-MYERS SQUIBB COMPANY-17461260

PATIENT
  Age: 91 Year
  Sex: Female

DRUGS (6)
  1. COUMADIN TABS 5 MG [Suspect]
     Indication: ATRIAL FIBRILLATION
     Dosage: 1 DF: 17.5 UNITS?INTERRUPTED ON 27-FEB-2013
     Route: 048
     Dates: start: 20100301
  2. ISOPTIN [Concomitant]
  3. LANOXIN [Concomitant]
  4. LUVION [Concomitant]
     Dosage: LUVION 100 MG TABLETS
  5. LASIX [Concomitant]
     Dosage: LASIX 25 MG TABLETS
  6. EUTIROX [Concomitant]
     Dosage: 50 MCG TABLETS

REACTIONS (3)
  - Fall [Recovered/Resolved]
  - Abdominal wall haematoma [Recovered/Resolved]
  - International normalised ratio increased [Recovered/Resolved]
